FAERS Safety Report 9404055 (Version 3)
Quarter: 2013Q3

REPORT INFORMATION
  Report Type: Spontaneous
  Country: US (occurrence: US)
  Receive Date: 20130717
  Receipt Date: 20130830
  Transmission Date: 20140515
  Serious: Yes (Death, Other)
  Sender: FDA-Public Use
  Company Number: US-AMGEN-USASP2013049699

PATIENT
  Age: 73 Year
  Sex: Female
  Weight: 45.4 kg

DRUGS (2)
  1. PROLIA [Suspect]
     Indication: OSTEOPOROSIS POSTMENOPAUSAL
     Dosage: 60 MG, Q6MO
     Route: 058
     Dates: start: 20101230
  2. PROLIA [Suspect]
     Indication: FRACTURE

REACTIONS (9)
  - Hip fracture [Unknown]
  - Cardio-respiratory arrest [Fatal]
  - Acute myocardial infarction [Fatal]
  - Arrhythmia [Fatal]
  - Brain death [Fatal]
  - Neuropathy peripheral [Unknown]
  - Restless legs syndrome [Not Recovered/Not Resolved]
  - Bronchitis [Unknown]
  - Visual impairment [Unknown]
